FAERS Safety Report 25958378 (Version 1)
Quarter: 2025Q4

REPORT INFORMATION
  Report Type: Spontaneous
  Country: US (occurrence: None)
  Receive Date: 20251024
  Receipt Date: 20251024
  Transmission Date: 20260118
  Serious: Yes (Hospitalization)
  Sender: FDA-CTU
  Company Number: None

PATIENT
  Age: 31 Year
  Sex: Female
  Weight: 114 kg

DRUGS (3)
  1. DULAGLUTIDE [Suspect]
     Active Substance: DULAGLUTIDE
  2. VICTOZA [Suspect]
     Active Substance: LIRAGLUTIDE
  3. MOUNJARO [Suspect]
     Active Substance: TIRZEPATIDE

REACTIONS (2)
  - Pancreatitis [None]
  - Hypersensitivity [None]

NARRATIVE: CASE EVENT DATE: 20251022
